FAERS Safety Report 16354954 (Version 1)
Quarter: 2019Q2

REPORT INFORMATION
  Report Type: Spontaneous
  Country: US (occurrence: US)
  Receive Date: 20190524
  Receipt Date: 20190524
  Transmission Date: 20190711
  Serious: Yes (Other)
  Sender: FDA-Public Use
  Company Number: PHEH2019US022237

PATIENT
  Age: 5 Year
  Sex: Male

DRUGS (4)
  1. BEVACIZUMAB. [Suspect]
     Active Substance: BEVACIZUMAB
     Indication: ASTROCYTOMA
     Dosage: UNK
     Route: 065
     Dates: end: 201809
  2. VINCRISTINE [Suspect]
     Active Substance: VINCRISTINE
     Indication: ASTROCYTOMA
     Dosage: UNK
     Route: 065
     Dates: end: 201809
  3. CARBOPLATIN. [Suspect]
     Active Substance: CARBOPLATIN
     Indication: ASTROCYTOMA
     Dosage: UNK
     Route: 065
     Dates: end: 201809
  4. VINBLASTINE [Suspect]
     Active Substance: VINBLASTINE
     Indication: ASTROCYTOMA
     Dosage: UNK
     Route: 065
     Dates: end: 201809

REACTIONS (6)
  - Glioma [Unknown]
  - Malignant neoplasm progression [Unknown]
  - Therapy non-responder [Unknown]
  - Optic glioma [Unknown]
  - Astrocytoma [Unknown]
  - Proteinuria [Recovering/Resolving]
